FAERS Safety Report 6563256-5 (Version None)
Quarter: 2010Q1

REPORT INFORMATION
  Report Type: 
  Country: None (occurrence: None)
  Receive Date: 20100130
  Receipt Date: 20091207
  Transmission Date: 20100710
  Serious: Yes (Hospitalization, Other)
  Sender: FDA-Public Use
  Company Number: US-ABBOTT-09P-163-0612709-00

PATIENT
  Sex: Female

DRUGS (6)
  1. HUMIRA [Suspect]
     Indication: DRUG USE FOR UNKNOWN INDICATION
     Dates: start: 20080101, end: 20090101
  2. HUMIRA [Suspect]
     Indication: RHEUMATOID ARTHRITIS
     Dates: start: 20090101
  3. ALBUTEROL [Concomitant]
     Indication: DRUG USE FOR UNKNOWN INDICATION
  4. ADVAIR DISKUS (FLUTICASONE PROPIONATE; SALMETEROL XINAFOATE) [Concomitant]
     Indication: ASTHMA
     Dosage: 500/50
  5. PREDNISONE [Concomitant]
     Indication: ASTHMA
  6. QVAR 40 [Concomitant]
     Indication: ASTHMA

REACTIONS (5)
  - ASTHMA [None]
  - GLAUCOMA [None]
  - INJECTION SITE HAEMATOMA [None]
  - INJECTION SITE PAIN [None]
  - PNEUMONIA [None]
